FAERS Safety Report 21137225 (Version 1)
Quarter: 2022Q3

REPORT INFORMATION
  Report Type: Spontaneous
  Country: US (occurrence: None)
  Receive Date: 20220726
  Receipt Date: 20220726
  Transmission Date: 20221027
  Serious: Yes (Disabling, Other)
  Sender: FDA-Public Use
  Company Number: None

PATIENT
  Age: 35 Year
  Sex: Female
  Weight: 48.73 kg

DRUGS (1)
  1. RISPERIDONE [Suspect]
     Active Substance: RISPERIDONE
     Indication: Product used for unknown indication
     Dosage: OTHER FREQUENCY : 2/3MG BEDTIME;?
     Route: 048

REACTIONS (4)
  - Fatigue [None]
  - Blood parathyroid hormone decreased [None]
  - Product prescribing error [None]
  - Hypersomnia [None]

NARRATIVE: CASE EVENT DATE: 20220726
